FAERS Safety Report 13095649 (Version 2)
Quarter: 2017Q1

REPORT INFORMATION
  Report Type: Spontaneous
  Country: US (occurrence: US)
  Receive Date: 20170108
  Receipt Date: 20170113
  Transmission Date: 20170428
  Serious: Yes (Life-Threatening)
  Sender: FDA-Public Use
  Company Number: US-ROCHE-1875770

PATIENT
  Age: 71 Year
  Sex: Female

DRUGS (11)
  1. CINNAMON. [Concomitant]
     Active Substance: CINNAMON
     Route: 048
  2. FUROSEMIDE. [Concomitant]
     Active Substance: FUROSEMIDE
     Route: 048
  3. KLOR-CON M20 [Concomitant]
     Active Substance: POTASSIUM CHLORIDE
     Indication: PAIN
     Dosage: 1 PILL
     Route: 048
  4. BORAGE OIL [Concomitant]
     Active Substance: BORAGE OIL
     Route: 048
  5. PERCOCET [Concomitant]
     Active Substance: ACETAMINOPHEN\OXYCODONE HYDROCHLORIDE
     Indication: PAIN
     Dosage: 5/325 MG AS NEEDED
     Route: 048
  6. TURMERIC [Concomitant]
     Active Substance: TURMERIC
     Route: 048
  7. XOLAIR [Suspect]
     Active Substance: OMALIZUMAB
     Indication: ASTHMA
     Route: 058
     Dates: start: 20110805, end: 20170103
  8. PANTOPRAZOLE [Concomitant]
     Active Substance: PANTOPRAZOLE SODIUM
     Route: 048
  9. LEVOTHYROXINE. [Concomitant]
     Active Substance: LEVOTHYROXINE
     Indication: HYPOTHYROIDISM
     Route: 048
  10. ACIDOPHILUS [Concomitant]
     Active Substance: LACTOBACILLUS ACIDOPHILUS
     Route: 048
  11. GINKGO BILOBA [Concomitant]
     Active Substance: GINKGO
     Route: 048

REACTIONS (6)
  - Swollen tongue [Unknown]
  - Feeling hot [Unknown]
  - Anaphylactic reaction [Unknown]
  - Pneumonia [Unknown]
  - Pharyngeal oedema [Unknown]
  - Palpitations [Unknown]

NARRATIVE: CASE EVENT DATE: 20110805
